FAERS Safety Report 4844746-X (Version None)
Quarter: 2005Q4

REPORT INFORMATION
  Report Type: 
  Country: None (occurrence: None)
  Receive Date: 20051129
  Receipt Date: 20051031
  Transmission Date: 20060501
  Serious: Yes (Hospitalization)
  Sender: FDA-Public Use
  Company Number: 28024

PATIENT
  Age: 63 Year
  Sex: Male

DRUGS (2)
  1. NUELIN SR (THEOPHYLLINE) [Suspect]
     Indication: HYPOTENSION
     Dosage: (1 IN 1 DAY(S-2)
     Dates: start: 20050101, end: 20050101
  2. NUELIN SR (THEOPHYLLINE) [Suspect]
     Indication: HYPOTENSION
     Dosage: 2 IN 1 DAY(S))
     Dates: start: 20050101

REACTIONS (12)
  - ABDOMINAL PAIN UPPER [None]
  - BONE PAIN [None]
  - DIZZINESS POSTURAL [None]
  - DYSPEPSIA [None]
  - HERPES ZOSTER [None]
  - HOT FLUSH [None]
  - HYPERHIDROSIS [None]
  - LIP DISORDER [None]
  - MYALGIA [None]
  - PHARYNGEAL OEDEMA [None]
  - PYREXIA [None]
  - VOMITING [None]
